FAERS Safety Report 14784157 (Version 1)
Quarter: 2018Q2

REPORT INFORMATION
  Report Type: Spontaneous
  Country: PL (occurrence: PL)
  Receive Date: 20180420
  Receipt Date: 20180420
  Transmission Date: 20180711
  Serious: Yes (Other)
  Sender: FDA-Public Use
  Company Number: PL-MYLANLABS-2018M1024364

PATIENT
  Sex: Male

DRUGS (4)
  1. DEXAMETHASONE. [Suspect]
     Active Substance: DEXAMETHASONE
     Dosage: DOSES WERE MODIFIED BETWEEN 0.350MG TO 0.125 MG
     Route: 048
  2. DEXAMETHASONE. [Suspect]
     Active Substance: DEXAMETHASONE
     Indication: CORTISOL DEFICIENCY
     Dosage: 0.25MG IN THE MORNING AND 0.125 MG IN THE EVENING
     Route: 048
  3. DEXAMETHASONE. [Suspect]
     Active Substance: DEXAMETHASONE
     Dosage: 0.25 MG, QD
     Route: 048
  4. DEXAMETHASONE. [Suspect]
     Active Substance: DEXAMETHASONE
     Dosage: IN THE MORNING
     Route: 048

REACTIONS (4)
  - Skin striae [Unknown]
  - Acne [Unknown]
  - Blood cholesterol increased [Recovered/Resolved]
  - Growth retardation [Unknown]
